FAERS Safety Report 9241260 (Version 1)
Quarter: 2013Q2

REPORT INFORMATION
  Report Type: Spontaneous
  Country: US (occurrence: US)
  Receive Date: 20130419
  Receipt Date: 20130419
  Transmission Date: 20140414
  Serious: Yes (Other)
  Sender: FDA-Public Use
  Company Number: US-SANOFI-AVENTIS-2013SA035571

PATIENT
  Age: 68 Year
  Sex: Male
  Weight: 106 kg

DRUGS (12)
  1. LANTUS SOLOSTAR [Suspect]
     Indication: TYPE 2 DIABETES MELLITUS
     Dosage: DOSE: AT EVENING TIME DOSE:38 UNIT(S)
     Route: 051
     Dates: start: 201107
  2. SOLOSTAR [Suspect]
     Indication: TYPE 2 DIABETES MELLITUS
     Dates: start: 201107
  3. ACTOS [Suspect]
     Route: 048
  4. GLUCOPHAGE [Concomitant]
     Route: 048
  5. ONGLYZA [Concomitant]
     Route: 048
  6. SIMVASTATIN [Concomitant]
     Route: 048
  7. AMLODIPINE BESILATE [Concomitant]
     Route: 048
  8. LISINOPRIL [Concomitant]
     Route: 048
  9. METOPROLOL TARTRATE [Concomitant]
     Dosage: 1/2 TABLET TWICE DAILY
     Route: 048
  10. FISH OIL [Concomitant]
     Dosage: 4 CAPSULE DAILY
  11. LUMIGAN [Concomitant]
     Dosage: DOSE: 1 DROP IN LEFT EYE
  12. ASPIRIN [Concomitant]

REACTIONS (6)
  - Influenza [Unknown]
  - Sinus disorder [Unknown]
  - Parosmia [Not Recovered/Not Resolved]
  - Ageusia [Recovering/Resolving]
  - Nasal disorder [Not Recovered/Not Resolved]
  - Anosmia [Not Recovered/Not Resolved]
